FAERS Safety Report 25738653 (Version 1)
Quarter: 2025Q3

REPORT INFORMATION
  Report Type: Spontaneous
  Country: US (occurrence: US)
  Receive Date: 20250829
  Receipt Date: 20250829
  Transmission Date: 20251020
  Serious: No
  Sender: MDD OPERATIONS
  Company Number: US-002147023-MDD202507-002541

PATIENT
  Age: 69 Year

DRUGS (3)
  1. ONAPGO [Suspect]
     Active Substance: APOMORPHINE HYDROCHLORIDE
     Indication: Parkinson^s disease
     Dates: start: 20250521
  2. CARBIDOPA [Concomitant]
     Active Substance: CARBIDOPA
  3. LEVODOPA [Concomitant]
     Active Substance: LEVODOPA

REACTIONS (2)
  - Visual impairment [Recovered/Resolved]
  - Hypotension [Recovered/Resolved]

NARRATIVE: CASE EVENT DATE: 20250101
